FAERS Safety Report 24445005 (Version 1)
Quarter: 2024Q4

REPORT INFORMATION
  Report Type: Spontaneous
  Country: AU (occurrence: AU)
  Receive Date: 20241016
  Receipt Date: 20241016
  Transmission Date: 20250115
  Serious: Yes (Other)
  Sender: BAXTER
  Company Number: AU-BAXTER-2024BAX024644

PATIENT
  Age: 58 Year

DRUGS (2)
  1. ANHYDROUS DEXTROSE [Suspect]
     Active Substance: ANHYDROUS DEXTROSE
     Indication: Medication dilution
     Dosage: GLUCOSE 5% VIAFLO BAG USED TO DILUTE 253 MG OF CARBOPLATIN AT AN UNSPECIFIED FREQUENCY
     Route: 065
     Dates: start: 20240911
  2. CARBOPLATIN [Suspect]
     Active Substance: CARBOPLATIN
     Dosage: 253 MG OF CARBOPLATIN DILUTED IN GLUCOSE 5% VIAFLO BAG AT AN UNSPECIFIED FREQUENCY
     Route: 065
     Dates: start: 20240911

REACTIONS (4)
  - Hypoxia [Recovered/Resolved]
  - Altered state of consciousness [Recovered/Resolved]
  - Pruritus [Recovered/Resolved]
  - Hypotension [Recovered/Resolved]

NARRATIVE: CASE EVENT DATE: 20240911
